FAERS Safety Report 23710162 (Version 1)
Quarter: 2024Q2

REPORT INFORMATION
  Report Type: Spontaneous
  Country: US (occurrence: US)
  Receive Date: 20240405
  Receipt Date: 20240405
  Transmission Date: 20240716
  Serious: No
  Sender: FDA-Public Use
  Company Number: US-BRISTOL-MYERS SQUIBB COMPANY-2024-053785

PATIENT
  Age: 65 Year
  Sex: Male

DRUGS (2)
  1. ELIQUIS [Suspect]
     Active Substance: APIXABAN
     Indication: Product used for unknown indication
     Dosage: DOSE: 2 TABLET AND 1 TABLET, FREQ: 2 TABLETS TWICE DAILY FOR 7 DAYS (STARTER) THEN 1 TABLET TWICE DA
     Route: 048
  2. ELIQUIS [Suspect]
     Active Substance: APIXABAN
     Dosage: DOSE: 2 TABLET AND 1 TABLET, FREQ: 2 TABLETS TWICE DAILY FOR 7 DAYS (STARTER) THEN 1 TABLET TWICE DA
     Route: 048

REACTIONS (1)
  - Adverse event [Unknown]
